FAERS Safety Report 7400792-3 (Version None)
Quarter: 2011Q2

REPORT INFORMATION
  Report Type: 
  Country: None (occurrence: None)
  Receive Date: 20110407
  Receipt Date: 20110331
  Transmission Date: 20111010
  Serious: Yes (Other)
  Sender: FDA-Public Use
  Company Number: B0711267A

PATIENT
  Sex: Male
  Weight: 85 kg

DRUGS (16)
  1. ZYVOX [Concomitant]
     Dates: start: 20110208
  2. UNKNOWN DRUG [Concomitant]
     Dates: start: 20110215, end: 20110218
  3. DIPRIVAN [Concomitant]
     Dates: start: 20110206
  4. RIFADIN [Concomitant]
     Dates: start: 20110215, end: 20110218
  5. PRILOSEC [Concomitant]
     Dates: start: 20110206
  6. PRIMPERAN TAB [Concomitant]
     Dates: start: 20110215
  7. ULTIVA [Concomitant]
     Dates: start: 20110216
  8. LINEZOLID [Concomitant]
     Dosage: 600MG TWICE PER DAY
     Route: 042
     Dates: start: 20110208
  9. CLINDAMYCIN [Concomitant]
     Dosage: 600MG THREE TIMES PER DAY
     Route: 042
     Dates: start: 20110210
  10. ZANAMIVIR [Suspect]
     Indication: H1N1 INFLUENZA
     Route: 042
     Dates: start: 20110209, end: 20110217
  11. TAMIFLU [Concomitant]
     Indication: INFLUENZA
     Dates: start: 20110208, end: 20110217
  12. DALACIN [Concomitant]
     Dates: start: 20110209
  13. MERONEM [Concomitant]
     Dates: start: 20110215
  14. DORMICUM [Concomitant]
     Dates: start: 20110206
  15. UNKNOWN DRUG [Concomitant]
     Dates: start: 20110206
  16. RIFAMPIN [Concomitant]
     Dosage: 600MG PER DAY
     Route: 042
     Dates: start: 20110215, end: 20110218

REACTIONS (1)
  - LEUKOPENIA [None]
